FAERS Safety Report 25975065 (Version 1)
Quarter: 2025Q4

REPORT INFORMATION
  Report Type: Report from Study
  Country: US (occurrence: US)
  Receive Date: 20251029
  Receipt Date: 20251029
  Transmission Date: 20260118
  Serious: Yes (Other)
  Sender: ABBVIE
  Company Number: US-ABBVIE-5878753

PATIENT
  Age: 46 Year
  Sex: Female
  Weight: 81.646 kg

DRUGS (3)
  1. CREON [Suspect]
     Active Substance: PANCRELIPASE AMYLASE\PANCRELIPASE LIPASE\PANCRELIPASE PROTEASE
     Indication: Pancreatic failure
     Dosage: UNKNOWN
     Route: 048
     Dates: start: 202402, end: 202402
  2. CREON [Suspect]
     Active Substance: PANCRELIPASE AMYLASE\PANCRELIPASE LIPASE\PANCRELIPASE PROTEASE
     Indication: Pancreatic failure
     Dosage: UNKNOWN
     Route: 048
     Dates: start: 202402, end: 202403
  3. CREON [Suspect]
     Active Substance: PANCRELIPASE AMYLASE\PANCRELIPASE LIPASE\PANCRELIPASE PROTEASE
     Indication: Pancreatic failure
     Route: 048

REACTIONS (13)
  - Endovenous ablation [Unknown]
  - Abdominal distension [Not Recovered/Not Resolved]
  - Feeling abnormal [Not Recovered/Not Resolved]
  - Alopecia [Not Recovered/Not Resolved]
  - Dyspepsia [Not Recovered/Not Resolved]
  - Constipation [Not Recovered/Not Resolved]
  - Malnutrition [Not Recovered/Not Resolved]
  - Abnormal faeces [Not Recovered/Not Resolved]
  - Abdominal pain [Not Recovered/Not Resolved]
  - Amylase decreased [Unknown]
  - Swelling [Not Recovered/Not Resolved]
  - Rash [Unknown]
  - Urticaria [Unknown]

NARRATIVE: CASE EVENT DATE: 20240101
